FAERS Safety Report 6712631-4 (Version None)
Quarter: 2010Q2

REPORT INFORMATION
  Report Type: 
  Country: None (occurrence: None)
  Receive Date: 20100506
  Receipt Date: 20100426
  Transmission Date: 20101027
  Serious: Yes (Hospitalization, Other)
  Sender: FDA-Public Use
  Company Number: US-JNJFOC-20100306673

PATIENT
  Sex: Female
  Weight: 58.51 kg

DRUGS (2)
  1. REMICADE [Suspect]
     Indication: RHEUMATOID ARTHRITIS
     Dosage: START DATE A FEW YEARS AGO (TOTAL NUMBER OF INFUSIONS WAS UNSPECIFIED)
     Route: 042
  2. SYNTHROID [Concomitant]

REACTIONS (1)
  - NON-HODGKIN'S LYMPHOMA [None]
